FAERS Safety Report 6463813-0 (Version None)
Quarter: 2009Q4

REPORT INFORMATION
  Report Type: 
  Country: None (occurrence: None)
  Receive Date: 20091201
  Receipt Date: 20091124
  Transmission Date: 20100525
  Serious: Yes (Hospitalization)
  Sender: FDA-Public Use
  Company Number: IT-JNJFOC-20091106987

PATIENT
  Sex: Female

DRUGS (1)
  1. LEVOXACIN [Suspect]
     Indication: BRONCHITIS CHRONIC
     Route: 048
     Dates: start: 20090728, end: 20090801

REACTIONS (1)
  - PRURIGO [None]
